FAERS Safety Report 19068799 (Version 1)
Quarter: 2021Q1

REPORT INFORMATION
  Report Type: Spontaneous
  Country: US (occurrence: US)
  Receive Date: 20210329
  Receipt Date: 20210329
  Transmission Date: 20210420
  Serious: No
  Sender: FDA-Public Use
  Company Number: US-P+L DEVELOPMENTS OF NEWYORK CORPORATION-2108534

PATIENT
  Age: 78 Year
  Sex: Female
  Weight: 63.64 kg

DRUGS (1)
  1. NICOTINE POLACRILEX [Suspect]
     Active Substance: NICOTINE
     Indication: SMOKING CESSATION THERAPY
     Route: 048

REACTIONS (3)
  - Oral mucosal eruption [Recovered/Resolved]
  - Product use complaint [Unknown]
  - Oral pain [Unknown]

NARRATIVE: CASE EVENT DATE: 20210304
